FAERS Safety Report 6404596-X (Version None)
Quarter: 2009Q4

REPORT INFORMATION
  Report Type: 
  Country: None (occurrence: None)
  Receive Date: 20091016
  Receipt Date: 20091013
  Transmission Date: 20100525
  Serious: Yes (Death, Hospitalization, Other)
  Sender: FDA-Public Use
  Company Number: SE-B.I. PHARMACEUTICALS,INC./RIDGEFIELD-2009-SW-00152SW

PATIENT
  Sex: Male
  Weight: 84 kg

DRUGS (48)
  1. CLONIDINE [Suspect]
     Indication: PAIN
     Dosage: STRENGTH 20?G/ML, 8?G/HR,0.5ML/HR
     Route: 037
     Dates: start: 20090128, end: 20090130
  2. CLONIDINE [Suspect]
     Dosage: 10?G/ML, 4?G/HR, 0.4ML/HR
     Route: 037
     Dates: start: 20090130, end: 20090201
  3. CLONIDINE [Suspect]
     Dosage: 10?G/ML, 0.3ML/HR
     Route: 037
     Dates: start: 20090201, end: 20090203
  4. CLONIDINE [Suspect]
     Dosage: 10?G/ML,0.2ML/HR
     Route: 037
     Dates: start: 20090203, end: 20090225
  5. CLONIDINE [Suspect]
     Dosage: 2?G/H
     Route: 037
     Dates: start: 20090203, end: 20090304
  6. BUPIVACAINE [Suspect]
     Indication: PAIN
     Dosage: 1MG/ML,  0.5ML/HR
     Route: 037
     Dates: start: 20090128, end: 20090130
  7. BUPIVACAINE [Suspect]
     Dosage: 1MG/ML, 0.4ML/HR
     Route: 037
     Dates: start: 20090130, end: 20090201
  8. BUPIVACAINE [Suspect]
     Dosage: 1MG/ML, 0.3ML/HR
     Route: 037
     Dates: start: 20090201, end: 20090203
  9. BUPIVACAINE [Suspect]
     Dosage: 1MG/ML, 0.2ML/HR, 0.2MG/HR
     Route: 037
     Dates: start: 20090203, end: 20090220
  10. BUPIVACAINE [Suspect]
     Dosage: 1MG/ML, 0.5ML/HR
     Route: 037
     Dates: start: 20090501, end: 20090601
  11. BUPIVACAINE [Suspect]
     Dosage: 1.5MG/ML, 0.7ML/HR, 0.6MG/HR
     Route: 037
     Dates: start: 20090601, end: 20090617
  12. BUPIVACAINE [Suspect]
     Dosage: 0.4MG/H
     Route: 037
     Dates: start: 20090220, end: 20090601
  13. BUPIVACAINE [Suspect]
     Dosage: 3MG/ML, 0.4ML/H
     Route: 037
     Dates: start: 20090617, end: 20090913
  14. BUPIVACAINE [Suspect]
     Dosage: 1MG/ML, 0,3ML/H
     Route: 037
     Dates: start: 20090326, end: 20090520
  15. BUPIVACAINE [Suspect]
     Dosage: 0.4MG/H
     Route: 037
     Dates: start: 20090128, end: 20090203
  16. BUPIVACAINE [Suspect]
     Dosage: 1.2MG/H
     Route: 037
     Dates: start: 20090617, end: 20090913
  17. BUPIVACAINE [Suspect]
     Dosage: 1MG/ML, 0.3ML/H
     Route: 037
     Dates: start: 20090220, end: 20090326
  18. MORPHINE [Suspect]
     Indication: PAIN
     Dosage: 0.2MG/ML, 0.5ML/HR
     Route: 037
     Dates: start: 20090128, end: 20090130
  19. MORPHINE [Suspect]
     Dosage: 0.2MG/ML, 0.4ML/HR
     Route: 037
     Dates: start: 20090130, end: 20090201
  20. MORPHINE [Suspect]
     Dosage: 0.2MG/ML, 0.3ML/HR
     Route: 037
     Dates: start: 20090201, end: 20090203
  21. MORPHINE [Suspect]
     Dosage: 0.2MG/ML, 0.2ML/H
     Route: 037
     Dates: start: 20090203, end: 20090220
  22. MORPHINE [Suspect]
     Dosage: 0.08MG/HR, 0.2MG/ML, 0.5ML/HR
     Route: 037
     Dates: start: 20090520, end: 20090601
  23. MORPHINE [Suspect]
     Dosage: 0.12MG/HR, 0.2MG/ML, 0.7ML/HR
     Route: 037
     Dates: start: 20090601, end: 20090617
  24. MORPHINE [Suspect]
     Dosage: 0.08MG/H
     Route: 037
     Dates: start: 20090128, end: 20090326
  25. MORPHINE [Suspect]
     Dosage: 0.04MG/H
     Route: 037
     Dates: start: 20090326, end: 20090520
  26. MORPHINE [Suspect]
     Dosage: 0.2MG/ML, 0.3ML/H
     Route: 037
     Dates: start: 20090220, end: 20090520
  27. MORPHINE [Suspect]
     Dosage: 0.16,G/H, 0.4MG/ML, 0.4ML/H
     Route: 037
     Dates: start: 20090617, end: 20090913
  28. SIMVASTATIN [Concomitant]
     Indication: HYPERLIPIDAEMIA
     Dosage: 40 MG
     Route: 048
     Dates: start: 20071231, end: 20090904
  29. EZETIMIBE [Concomitant]
     Indication: HYPERLIPIDAEMIA
     Dosage: 10 MG
     Route: 048
     Dates: start: 20070101, end: 20090904
  30. HPS2-THRIVE-STUDY DRUG [Concomitant]
     Indication: HYPERLIPIDAEMIA
     Dosage: 2 ANZ
     Route: 048
     Dates: start: 20070101, end: 20090904
  31. INOLAXOL [Concomitant]
     Indication: CONSTIPATION PROPHYLAXIS
     Dosage: 1 ANZ
     Route: 048
     Dates: start: 20090108, end: 20090904
  32. ACETYLSALICYLIC ACID [Concomitant]
     Indication: ISCHAEMIC HEART DISEASE PROPHYLAXIS
     Dosage: 75 MG
     Route: 048
     Dates: start: 19980101, end: 20090904
  33. AMILODIPIN [Concomitant]
     Indication: HYPERTENSION
     Dosage: 5 MG
     Route: 048
     Dates: start: 20081101, end: 20090904
  34. ENALAPRIL MALEATE [Concomitant]
     Indication: HYPERTENSION
     Dosage: 10 MG
     Route: 048
     Dates: start: 20081117, end: 20090904
  35. VIAGRA [Concomitant]
     Indication: ERECTILE DYSFUNCTION
     Route: 048
     Dates: start: 20071015, end: 20090904
  36. PARACETAMOL [Concomitant]
     Indication: PAIN
     Dosage: 4 G
     Route: 048
     Dates: start: 20090108, end: 20090904
  37. AMITRIPTYLINE [Concomitant]
     Indication: PAIN
     Dosage: 25 MG
     Route: 048
     Dates: start: 20090130, end: 20090904
  38. MORPHINE [Concomitant]
     Route: 048
     Dates: start: 20090305, end: 20090306
  39. MORPHINE [Concomitant]
     Dosage: 40 MG
     Route: 048
     Dates: start: 20090306, end: 20090313
  40. MORPHINE [Concomitant]
     Dosage: 60 MG
     Route: 048
     Dates: start: 20090330, end: 20090415
  41. MORPHINE [Concomitant]
     Dosage: 80 MG
     Route: 048
     Dates: start: 20090313, end: 20090323
  42. MORPHINE [Concomitant]
     Dosage: 40 MG
     Route: 048
     Dates: start: 20090323, end: 20090325
  43. MORPHINE [Concomitant]
     Dosage: 40 MG
     Route: 058
     Dates: start: 20090313
  44. MORPHINE [Concomitant]
     Route: 042
     Dates: start: 20090122, end: 20090310
  45. MORPHINE [Concomitant]
     Route: 048
     Dates: start: 20090313
  46. MORPHINE [Concomitant]
     Route: 048
     Dates: start: 20090310, end: 20090313
  47. ROPIVACAINE [Concomitant]
     Indication: PAIN
     Dosage: 150 MG
     Dates: start: 20090305, end: 20090305
  48. OXYCODONE [Concomitant]
     Indication: PAIN
     Route: 048
     Dates: start: 20081217, end: 20090308

REACTIONS (8)
  - BRAIN NEOPLASM [None]
  - CHEST PAIN [None]
  - COMA [None]
  - FATIGUE [None]
  - MALIGNANT NEOPLASM PROGRESSION [None]
  - PAIN [None]
  - SCROTAL INFECTION [None]
  - VERTIGO [None]
